FAERS Safety Report 5327239-5 (Version None)
Quarter: 2007Q2

REPORT INFORMATION
  Report Type: 
  Country: None (occurrence: None)
  Receive Date: 20070517
  Receipt Date: 20070510
  Transmission Date: 20071010
  Serious: Yes (Death)
  Sender: FDA-Public Use
  Company Number: FR-AVENTIS-200711617FR

PATIENT
  Age: 77 Year
  Sex: Female

DRUGS (11)
  1. LASILIX                            /00032601/ [Suspect]
     Indication: DRUG USE FOR UNKNOWN INDICATION
     Route: 048
     Dates: start: 20061020
  2. PRETERAX [Suspect]
     Indication: DRUG USE FOR UNKNOWN INDICATION
     Route: 048
     Dates: end: 20070109
  3. VALACYCLOVIR HCL [Concomitant]
     Route: 048
     Dates: start: 20070102, end: 20070108
  4. CEFTRIAXONE [Concomitant]
     Dates: start: 20070102, end: 20070103
  5. TIBERAL [Concomitant]
  6. NEURONTIN [Concomitant]
     Route: 048
     Dates: start: 20070102
  7. CLAMOXYL                           /00249601/ [Concomitant]
     Route: 048
     Dates: start: 20070103
  8. ACTRAPID [Concomitant]
  9. AMARYL [Concomitant]
     Route: 048
     Dates: start: 20070104, end: 20070108
  10. GLUCOPHAGE [Concomitant]
     Route: 048
     Dates: start: 20070104
  11. CARDENSIEL [Concomitant]
     Route: 048
     Dates: start: 20070108

REACTIONS (2)
  - DRUG INTERACTION [None]
  - RENAL FAILURE ACUTE [None]
